FAERS Safety Report 17362877 (Version 2)
Quarter: 2020Q1

REPORT INFORMATION
  Report Type: Report from Study
  Country: US (occurrence: US)
  Receive Date: 20200203
  Receipt Date: 20200316
  Transmission Date: 20200409
  Serious: No
  Sender: FDA-Public Use
  Company Number: NVSC2020US025732

PATIENT
  Age: 29 Year
  Sex: Male

DRUGS (2)
  1. ENTRESTO [Suspect]
     Active Substance: SACUBITRIL\VALSARTAN
     Indication: PRODUCT USED FOR UNKNOWN INDICATION
     Dosage: 1 DF (24 MG SACUBITRIL, 26 MG VALSARTAN), BID
     Route: 048
     Dates: start: 201912
  2. ENTRESTO [Suspect]
     Active Substance: SACUBITRIL\VALSARTAN
     Dosage: 1 DF (24 MG SACUBITRIL, 26 MG VALSARTAN), BID
     Route: 048
     Dates: start: 202001

REACTIONS (2)
  - Anxiety [Not Recovered/Not Resolved]
  - Implant site haemorrhage [Recovering/Resolving]

NARRATIVE: CASE EVENT DATE: 202001
